FAERS Safety Report 9685901 (Version 2)
Quarter: 2013Q4

REPORT INFORMATION
  Report Type: Spontaneous
  Country: US (occurrence: US)
  Receive Date: 20131113
  Receipt Date: 20131113
  Transmission Date: 20140711
  Serious: No
  Sender: FDA-Public Use
  Company Number: US-ALLERGAN-1313399US

PATIENT
  Age: 37 Year
  Sex: Female

DRUGS (1)
  1. COMBIGAN[R] [Suspect]
     Indication: OCULAR HYPERTENSION
     Dosage: 2 GTT, TID
     Route: 047

REACTIONS (3)
  - Malaise [Unknown]
  - Asthenopia [Unknown]
  - Inappropriate schedule of drug administration [Unknown]
